FAERS Safety Report 10316997 (Version 2)
Quarter: 2015Q1

REPORT INFORMATION
  Report Type: Other
  Country: US (occurrence: US)
  Receive Date: 20140719
  Receipt Date: 20150319
  Transmission Date: 20150720
  Serious: Yes (Hospitalization, Other)
  Sender: FDA-Public Use
  Company Number: US-GSKPPD-2014GSK007610

PATIENT
  Age: 53 Year
  Sex: Female

DRUGS (12)
  1. COREG [Concomitant]
     Active Substance: CARVEDILOL
  2. NITROGLYCERINE [Concomitant]
     Active Substance: NITROGLYCERIN
  3. ESMOLOL [Concomitant]
     Active Substance: ESMOLOL HYDROCHLORIDE
     Route: 048
  4. SPIRONOLACTONE. [Concomitant]
     Active Substance: SPIRONOLACTONE
     Route: 048
  5. PLAVIX [Concomitant]
     Active Substance: CLOPIDOGREL BISULFATE
     Route: 048
  6. NORVASC [Concomitant]
     Active Substance: AMLODIPINE BESYLATE
  7. HEPARIN [Concomitant]
     Active Substance: HEPARIN SODIUM
  8. FUROSEMIDE. [Concomitant]
     Active Substance: FUROSEMIDE
     Route: 048
  9. ASPIRIN. [Concomitant]
     Active Substance: ASPIRIN
     Route: 048
  10. LANOXIN [Concomitant]
     Active Substance: DIGOXIN
  11. AVANDIA [Suspect]
     Active Substance: ROSIGLITAZONE MALEATE
     Indication: DIABETES MELLITUS
     Dosage: AVANDIA WAS NOT LISTED AMONG THE PATIENT^S RECORDS REVIEWED
     Route: 048
  12. ISOSORBIDE [Concomitant]
     Active Substance: ISOSORBIDE

REACTIONS (1)
  - Cardiac failure congestive [Recovered/Resolved]

NARRATIVE: CASE EVENT DATE: 20040717
